FAERS Safety Report 11801564 (Version 2)
Quarter: 2016Q1

REPORT INFORMATION
  Report Type: Spontaneous
  Country: US (occurrence: US)
  Receive Date: 20151204
  Receipt Date: 20160211
  Transmission Date: 20160525
  Serious: Yes (Hospitalization)
  Sender: FDA-Public Use
  Company Number: US-PFIZER INC-2015339445

PATIENT
  Age: 72 Year
  Sex: Female
  Weight: 73 kg

DRUGS (3)
  1. CHAPSTICK CLASSIC ORIGINAL [Suspect]
     Active Substance: PETROLATUM
     Indication: LIP DRY
     Dosage: ? X A DAY
  2. CHAPSTICK TOTAL HYDRATION [Suspect]
     Active Substance: COSMETICS
     Indication: LIP DRY
     Dosage: 3/4 X A DAY
     Dates: start: 201509
  3. CHAPSTICK MOISTURIZER [Suspect]
     Active Substance: OCTINOXATE\OXYBENZONE\PETROLATUM
     Indication: LIP DRY
     Dosage: 2/3 X A DAY

REACTIONS (2)
  - Feeling abnormal [Unknown]
  - Malaise [Unknown]
